FAERS Safety Report 13647103 (Version 1)
Quarter: 2017Q2

REPORT INFORMATION
  Report Type: Spontaneous
  Country: CA (occurrence: CA)
  Receive Date: 20170613
  Receipt Date: 20170613
  Transmission Date: 20170830
  Serious: Yes (Life-Threatening)
  Sender: FDA-Public Use
  Company Number: CA-ASTRAZENECA-2017SE61292

PATIENT
  Age: 93 Year
  Sex: Female
  Weight: 69 kg

DRUGS (22)
  1. FUROSEMIDE. [Concomitant]
     Active Substance: FUROSEMIDE
  2. LANTUS [Concomitant]
     Active Substance: INSULIN GLARGINE
     Route: 058
  3. HYDROMORPHONE [Concomitant]
     Active Substance: HYDROMORPHONE
  4. AMLODIPINE [Concomitant]
     Active Substance: AMLODIPINE BESYLATE
  5. COUMADIN [Concomitant]
     Active Substance: WARFARIN SODIUM
  6. NITRO-DUR [Concomitant]
     Active Substance: NITROGLYCERIN
  7. VITAMIN B12 [Concomitant]
     Active Substance: CYANOCOBALAMIN
  8. ONGLYZA [Suspect]
     Active Substance: SAXAGLIPTIN HYDROCHLORIDE
     Indication: TYPE 2 DIABETES MELLITUS
     Route: 048
  9. ACETAMINOPHEN. [Concomitant]
     Active Substance: ACETAMINOPHEN
  10. IRON SULPHATE [Concomitant]
     Active Substance: FERROUS SULFATE ANHYDROUS
  11. LORAZEPAM. [Concomitant]
     Active Substance: LORAZEPAM
  12. POTASSIUM [Concomitant]
     Active Substance: POTASSIUM
  13. DOCUSATE SODIUM. [Concomitant]
     Active Substance: DOCUSATE SODIUM
  14. VITAMIN D [Concomitant]
     Active Substance: CHOLECALCIFEROL
  15. BISOPROLOL [Concomitant]
     Active Substance: BISOPROLOL
  16. HUMALOG [Concomitant]
     Active Substance: INSULIN LISPRO
  17. NITROGLYCERIN. [Concomitant]
     Active Substance: NITROGLYCERIN
  18. QUETIAPINE. [Concomitant]
     Active Substance: QUETIAPINE
  19. VITAMIN C [Concomitant]
     Active Substance: ASCORBIC ACID
  20. FLOVENT [Concomitant]
     Active Substance: FLUTICASONE PROPIONATE
  21. JANUVIA [Concomitant]
     Active Substance: SITAGLIPTIN PHOSPHATE
  22. SENNOSIDES. [Concomitant]
     Active Substance: SENNOSIDES

REACTIONS (1)
  - Cardiac failure [Recovered/Resolved]
